FAERS Safety Report 16079766 (Version 1)
Quarter: 2019Q1

REPORT INFORMATION
  Report Type: Report from Study
  Country: UA (occurrence: UA)
  Receive Date: 20190315
  Receipt Date: 20190315
  Transmission Date: 20190418
  Serious: Yes (Other)
  Sender: FDA-Public Use
  Company Number: UA-REGENERON PHARMACEUTICALS, INC.-2019-21569

PATIENT

DRUGS (2)
  1. EYLEA [Suspect]
     Active Substance: AFLIBERCEPT
     Indication: DIABETIC RETINAL OEDEMA
     Dosage: UNK UNK, Q4WK
     Dates: start: 20170117
  2. EYLEA [Suspect]
     Active Substance: AFLIBERCEPT
     Dosage: 1 DF, ONCE; LAST INJECTION BEFORE THE EVENT
     Dates: start: 20190227, end: 20190227

REACTIONS (1)
  - Scleral haemorrhage [Unknown]

NARRATIVE: CASE EVENT DATE: 20190227
